FAERS Safety Report 6471329-0 (Version None)
Quarter: 2009Q4

REPORT INFORMATION
  Report Type: 
  Country: None (occurrence: None)
  Receive Date: 20091203
  Receipt Date: 20090129
  Transmission Date: 20100525
  Serious: Yes (Hospitalization)
  Sender: FDA-Public Use
  Company Number: DE-ELI_LILLY_AND_COMPANY-DE200802001978

PATIENT
  Age: 27 Year
  Sex: Male
  Weight: 100 kg

DRUGS (7)
  1. ZYPREXA [Suspect]
     Indication: SCHIZOPHRENIA
     Dosage: 5 MG, DAILY (1/D)
     Dates: end: 20071021
  2. ZYPREXA [Suspect]
     Dosage: 15 MG, UNK
     Route: 048
     Dates: start: 20071022, end: 20071116
  3. ZYPREXA [Suspect]
     Dosage: 20 MG, UNK
     Route: 048
     Dates: start: 20071117, end: 20071125
  4. ZYPREXA [Suspect]
     Dosage: 30 MG, UNK
     Route: 048
     Dates: start: 20071126, end: 20071203
  5. ZYPREXA [Suspect]
     Dosage: 20 MG, UNK
     Route: 048
     Dates: start: 20071204, end: 20071210
  6. ZYPREXA [Suspect]
     Dosage: 10 MG, UNK
     Route: 048
     Dates: start: 20071211, end: 20071225
  7. LORAZEPAM [Concomitant]
     Dates: start: 20071022, end: 20071220

REACTIONS (6)
  - HALLUCINATION, AUDITORY [None]
  - MENTAL DISORDER [None]
  - OVERDOSE [None]
  - PERSONALITY DISORDER [None]
  - PSEUDOPHAEOCHROMOCYTOMA [None]
  - SENSATION OF PRESSURE [None]
